FAERS Safety Report 23658899 (Version 3)
Quarter: 2025Q1

REPORT INFORMATION
  Report Type: Spontaneous
  Country: US (occurrence: US)
  Receive Date: 20240321
  Receipt Date: 20250101
  Transmission Date: 20250409
  Serious: No
  Sender: SUNOVION
  Company Number: US-MYOVANT SCIENCES GMBH-2023MYSCI1100857

PATIENT

DRUGS (8)
  1. MYFEMBREE [Suspect]
     Active Substance: ESTRADIOL HEMIHYDRATE\NORETHINDRONE ACETATE\RELUGOLIX
     Indication: Coital bleeding
     Dosage: 40-1-0.5/ 1 TAB, QD
     Route: 048
  2. MYFEMBREE [Suspect]
     Active Substance: ESTRADIOL HEMIHYDRATE\NORETHINDRONE ACETATE\RELUGOLIX
     Indication: Endometriosis
     Dosage: 1 DF, QD
     Route: 048
     Dates: end: 20231125
  3. MYFEMBREE [Suspect]
     Active Substance: ESTRADIOL HEMIHYDRATE\NORETHINDRONE ACETATE\RELUGOLIX
     Dosage: 40-1-0.5/ 1 TAB, QD
     Route: 048
  4. ARIPIPRAZOLE [Concomitant]
     Active Substance: ARIPIPRAZOLE
     Indication: Product used for unknown indication
     Route: 065
  5. BUPROPION [Concomitant]
     Active Substance: BUPROPION
     Indication: Product used for unknown indication
     Route: 065
  6. FLUOXETINE [Concomitant]
     Active Substance: FLUOXETINE HYDROCHLORIDE
     Indication: Product used for unknown indication
     Route: 065
  7. FOCALIN                            /01611102/ [Concomitant]
     Indication: Product used for unknown indication
     Route: 065
  8. PRAZOSIN [Concomitant]
     Active Substance: PRAZOSIN
     Indication: Product used for unknown indication
     Route: 065

REACTIONS (4)
  - Menopausal symptoms [Unknown]
  - Hot flush [Unknown]
  - Hyperhidrosis [Unknown]
  - Therapy interrupted [Not Recovered/Not Resolved]

NARRATIVE: CASE EVENT DATE: 20231126
